FAERS Safety Report 8054974-0 (Version None)
Quarter: 2012Q1

REPORT INFORMATION
  Report Type: 
  Country: None (occurrence: None)
  Receive Date: 20120119
  Receipt Date: 20120110
  Transmission Date: 20120608
  Serious: Yes (Hospitalization)
  Sender: FDA-Public Use
  Company Number: FR-PFIZER INC-2012008889

PATIENT
  Age: 85 Year
  Sex: Female

DRUGS (9)
  1. ATORVASTATIN CALCIUM [Suspect]
     Dosage: 10 MG, 1X/DAY
     Route: 048
     Dates: end: 20111128
  2. COZAAR [Suspect]
     Dosage: 100 MG, 1X/DAY
     Route: 048
     Dates: end: 20111128
  3. NEBIVOLOL [Suspect]
     Dosage: 2.5 MG, 1X/DAY
     Route: 048
     Dates: end: 20111128
  4. XALATAN [Concomitant]
     Dosage: UNK
  5. RAMIPRIL [Suspect]
     Dosage: 5 MG, 1X/DAY
     Route: 048
     Dates: end: 20111128
  6. COUMADIN [Concomitant]
     Dosage: UNK
     Dates: start: 20090501
  7. FUROSEMIDE [Concomitant]
     Dosage: UNK
  8. ESCITALOPRAM [Concomitant]
     Dosage: UNK
     Dates: start: 20110701
  9. AMLODIPINE [Concomitant]
     Dosage: UNK

REACTIONS (4)
  - INTERSTITIAL LUNG DISEASE [None]
  - PULMONARY FIBROSIS [None]
  - ACUTE RESPIRATORY FAILURE [None]
  - ORTHOPNOEA [None]
